FAERS Safety Report 7488422-6 (Version None)
Quarter: 2011Q2

REPORT INFORMATION
  Report Type: 
  Country: None (occurrence: None)
  Receive Date: 20110518
  Receipt Date: 20110504
  Transmission Date: 20111010
  Serious: Yes (Hospitalization)
  Sender: FDA-Public Use
  Company Number: CA-JNJFOC-20110502399

PATIENT
  Sex: Female
  Weight: 104.8 kg

DRUGS (10)
  1. CITALOPRAM [Concomitant]
  2. TOPAMAX [Concomitant]
  3. WELLBUTRIN [Concomitant]
  4. REMICADE [Suspect]
     Indication: ANKYLOSING SPONDYLITIS
     Dosage: SINGLE TRIAL DOSE
     Route: 042
     Dates: end: 20110401
  5. REMICADE [Suspect]
     Dosage: SINGLE TRIAL DOSE
     Route: 042
     Dates: end: 20100101
  6. VITAMIN B-12 [Concomitant]
  7. NEXIUM [Concomitant]
  8. VITAMIN D [Concomitant]
  9. REMICADE [Suspect]
     Indication: CROHN'S DISEASE
     Dosage: SINGLE TRIAL DOSE
     Route: 042
     Dates: end: 20110401
  10. REMICADE [Suspect]
     Dosage: SINGLE TRIAL DOSE
     Route: 042
     Dates: end: 20100101

REACTIONS (5)
  - MUSCULOSKELETAL CHEST PAIN [None]
  - WHEEZING [None]
  - PAIN [None]
  - CHEST DISCOMFORT [None]
  - OEDEMA PERIPHERAL [None]
